FAERS Safety Report 5342149-5 (Version None)
Quarter: 2007Q2

REPORT INFORMATION
  Report Type: 
  Country: None (occurrence: None)
  Receive Date: 20070601
  Receipt Date: 20070529
  Transmission Date: 20071010
  Serious: Yes (Other)
  Sender: FDA-Public Use
  Company Number: A0653174A

PATIENT
  Sex: Male

DRUGS (6)
  1. AVANDIA [Suspect]
     Route: 048
  2. AVANDAMET [Suspect]
     Route: 048
  3. TRICOR [Concomitant]
  4. BENICAR [Concomitant]
  5. ALLOPURINOL [Concomitant]
  6. METFORMIN HCL [Concomitant]

REACTIONS (5)
  - ABDOMINAL DISTENSION [None]
  - ABNORMAL FAECES [None]
  - CHEST PAIN [None]
  - DEPRESSION [None]
  - SUICIDAL IDEATION [None]
